FAERS Safety Report 8428770-6 (Version None)
Quarter: 2012Q2

REPORT INFORMATION
  Report Type: 
  Country: None (occurrence: None)
  Receive Date: 20120612
  Receipt Date: 20120604
  Transmission Date: 20120825
  Serious: Yes (Hospitalization)
  Sender: FDA-Public Use
  Company Number: US-BAYER-2012-028127

PATIENT
  Age: 19 Year
  Sex: Female
  Weight: 123 kg

DRUGS (1)
  1. YAZ [Suspect]
     Dosage: UNK
     Dates: start: 20090101, end: 20100101

REACTIONS (7)
  - POST-TRAUMATIC STRESS DISORDER [None]
  - EMOTIONAL DISORDER [None]
  - DEEP VEIN THROMBOSIS [None]
  - MOBILITY DECREASED [None]
  - PULMONARY EMBOLISM [None]
  - PAIN [None]
  - OEDEMA PERIPHERAL [None]
